FAERS Safety Report 10371727 (Version 2)
Quarter: 2014Q3

REPORT INFORMATION
  Report Type: Report from Study
  Country: CA (occurrence: CA)
  Receive Date: 20140808
  Receipt Date: 20140808
  Transmission Date: 20150326
  Serious: Yes (Other)
  Sender: FDA-Public Use
  Company Number: CA-BRISTOL-MYERS SQUIBB COMPANY-19933639

PATIENT
  Age: 66 Year
  Sex: Male

DRUGS (8)
  1. SULFA [Concomitant]
     Active Substance: UNSPECIFIED INGREDIENT
  2. FOLIC ACID. [Concomitant]
     Active Substance: FOLIC ACID
  3. LIPITOR [Concomitant]
     Active Substance: ATORVASTATIN CALCIUM
  4. ALTACE [Concomitant]
     Active Substance: RAMIPRIL
  5. ORENCIA [Suspect]
     Active Substance: ABATACEPT
     Indication: RHEUMATOID ARTHRITIS
     Dosage: 1 DF= 1000 (UNITS UNSPECIFIED)
     Route: 042
     Dates: start: 20081017
  6. SYNTHROID [Concomitant]
     Active Substance: LEVOTHYROXINE SODIUM
  7. HYDROCHLOROTHIAZIDE. [Concomitant]
     Active Substance: HYDROCHLOROTHIAZIDE
  8. EZETROL [Concomitant]
     Active Substance: EZETIMIBE

REACTIONS (1)
  - Diabetes mellitus [Unknown]
